FAERS Safety Report 6015241-X (Version None)
Quarter: 2008Q4

REPORT INFORMATION
  Report Type: 
  Country: None (occurrence: None)
  Receive Date: 20081219
  Receipt Date: 20081219
  Transmission Date: 20090506
  Serious: Yes (Other)
  Sender: FDA-Public Use
  Company Number: None

PATIENT
  Age: 29 Year
  Sex: Male
  Weight: 102.0593 kg

DRUGS (2)
  1. LEVAQUIN [Suspect]
     Indication: LOWER RESPIRATORY TRACT INFECTION
     Dosage: 1 PILL DAILY FOR 7 DAYS PO
     Route: 048
     Dates: start: 20081209, end: 20081216
  2. LEVAQUIN [Suspect]
     Indication: SINUSITIS
     Dosage: 1 PILL DAILY FOR 7 DAYS PO
     Route: 048
     Dates: start: 20081209, end: 20081216

REACTIONS (8)
  - ANXIETY [None]
  - CONFUSIONAL STATE [None]
  - FEELING ABNORMAL [None]
  - HEADACHE [None]
  - IMPAIRED WORK ABILITY [None]
  - INSOMNIA [None]
  - MEMORY IMPAIRMENT [None]
  - PARANOIA [None]
